FAERS Safety Report 16745857 (Version 1)
Quarter: 2019Q3

REPORT INFORMATION
  Report Type: Spontaneous
  Country: US (occurrence: US)
  Receive Date: 20190827
  Receipt Date: 20190827
  Transmission Date: 20191005
  Serious: Yes (Hospitalization, Other)
  Sender: FDA-Public Use
  Company Number: US-OTSUKA-2019_030448

PATIENT
  Age: 51 Year
  Sex: Male

DRUGS (10)
  1. CYTARABINE. [Suspect]
     Active Substance: CYTARABINE
     Dosage: 100 MG/M2, DAYS 1 THROUGH 5
     Route: 042
  2. DECITABINE. [Suspect]
     Active Substance: DECITABINE
     Indication: ACUTE MONOCYTIC LEUKAEMIA
     Dosage: 15 MG/M2, TID
     Route: 042
  3. DAUNORUBICIN [Suspect]
     Active Substance: DAUNORUBICIN
     Dosage: 60 MG/M2, DAY 1 THROUGH 3
     Route: 042
  4. DAUNORUBICIN [Suspect]
     Active Substance: DAUNORUBICIN
     Dosage: 45 MG/M2, DAY 1 THROUGH 2
     Route: 042
  5. CYTARABINE. [Suspect]
     Active Substance: CYTARABINE
     Indication: CHEMOTHERAPY
     Dosage: 100 MG/M2, DAYS 1 THROUGH 7
     Route: 042
  6. DAUNORUBICIN [Suspect]
     Active Substance: DAUNORUBICIN
     Indication: CHEMOTHERAPY
     Dosage: 60 MG/M2, DAY 1 THROUGH 3
     Route: 042
  7. SORAFENIB [Suspect]
     Active Substance: SORAFENIB
     Indication: CHEMOTHERAPY
     Dosage: 200 MG, QD
     Route: 048
  8. MIDOSTAURIN [Suspect]
     Active Substance: MIDOSTAURIN
     Indication: ACUTE MONOCYTIC LEUKAEMIA
     Dosage: 50 MG, BID
     Route: 048
  9. CYTARABINE. [Suspect]
     Active Substance: CYTARABINE
     Dosage: 200 MG/M2, DAYS 1 THROUGH 7
     Route: 042
  10. CLADRIBINE. [Suspect]
     Active Substance: CLADRIBINE
     Indication: CHEMOTHERAPY
     Dosage: 2.5 MG/M2, DAY 1 THROUGH 5
     Route: 042

REACTIONS (14)
  - Asthenia [Unknown]
  - Gastrointestinal haemorrhage [Unknown]
  - Duodenal ulcer [Unknown]
  - Pneumonia respiratory syncytial viral [Unknown]
  - Bacteraemia [Unknown]
  - Clostridium difficile infection [Unknown]
  - Product use in unapproved indication [Unknown]
  - Seizure [Unknown]
  - Hyporesponsive to stimuli [Unknown]
  - Epistaxis [Unknown]
  - Acute myocardial infarction [Unknown]
  - Respiratory failure [Unknown]
  - Endocarditis [Unknown]
  - Hypotension [Unknown]
